FAERS Safety Report 9053236 (Version 2)
Quarter: 2013Q1

REPORT INFORMATION
  Report Type: Spontaneous
  Country: GB (occurrence: GB)
  Receive Date: 20130208
  Receipt Date: 20130222
  Transmission Date: 20140127
  Serious: Yes (Hospitalization)
  Sender: FDA-Public Use
  Company Number: GB-AMGEN-GBRSP2013003970

PATIENT
  Age: 80 Year
  Sex: Female

DRUGS (6)
  1. PROLIA [Suspect]
     Indication: OSTEOPOROSIS POSTMENOPAUSAL
     Dosage: 60 MG, Q6MO
     Route: 058
     Dates: start: 20120627
  2. BENDROFLUMETHIAZIDE [Concomitant]
  3. CALCICHEW D3 [Concomitant]
  4. CO DYDRAMOL [Concomitant]
  5. GABAPENTIN [Concomitant]
  6. LEVOTHYROXINE [Concomitant]

REACTIONS (1)
  - Ophthalmic herpes zoster [Recovered/Resolved]
